FAERS Safety Report 25202230 (Version 1)
Quarter: 2025Q2

REPORT INFORMATION
  Report Type: Spontaneous
  Country: US (occurrence: US)
  Receive Date: 20250416
  Receipt Date: 20250416
  Transmission Date: 20250716
  Serious: Yes (Hospitalization)
  Sender: PHARMACOSMOS
  Company Number: US-NEBO-692905

PATIENT
  Age: 29 Year
  Sex: Female
  Weight: 119.7 kg

DRUGS (4)
  1. ALBUTEROL SULFATE [Concomitant]
     Active Substance: ALBUTEROL SULFATE
  2. MONOFERRIC [Suspect]
     Active Substance: FERRIC DERISOMALTOSE
     Indication: Iron deficiency anaemia
     Dates: start: 20250403, end: 20250403
  3. MONOFERRIC [Suspect]
     Active Substance: FERRIC DERISOMALTOSE
     Indication: Iron deficiency anaemia
     Dates: start: 20250403, end: 20250403
  4. pantoprarozle [Concomitant]

REACTIONS (7)
  - Nausea [Unknown]
  - Dyspnoea [Unknown]
  - Heart rate increased [Unknown]
  - Feeling hot [Unknown]
  - Tremor [Unknown]
  - Flushing [Unknown]
  - Dizziness [Unknown]

NARRATIVE: CASE EVENT DATE: 20250403
